FAERS Safety Report 4383519-1 (Version None)
Quarter: 2004Q2

REPORT INFORMATION
  Report Type: 
  Country: None (occurrence: None)
  Receive Date: 20040623
  Receipt Date: 20040615
  Transmission Date: 20050107
  Serious: Yes (Death)
  Sender: FDA-Public Use
  Company Number: GB-MERCK-0406USA01570

PATIENT
  Age: 78 Year
  Sex: Male
  Weight: 84 kg

DRUGS (2)
  1. [THERAPY UNSPECIFIED] [Concomitant]
     Route: 065
  2. PRINIVIL [Suspect]
     Indication: HYPERTENSION
     Route: 048
     Dates: start: 19920101

REACTIONS (5)
  - FACE OEDEMA [None]
  - LARYNGEAL OEDEMA [None]
  - MYOCARDIAL ISCHAEMIA [None]
  - PROSTATE CANCER METASTATIC [None]
  - SWELLING FACE [None]
